FAERS Safety Report 14201910 (Version 2)
Quarter: 2019Q4

REPORT INFORMATION
  Report Type: Spontaneous
  Country: JP (occurrence: JP)
  Receive Date: 20171117
  Receipt Date: 20191104
  Transmission Date: 20200122
  Serious: Yes (Hospitalization, Other)
  Sender: FDA-Public Use
  Company Number: JP-VALIDUS PHARMACEUTICALS LLC-JP-2017VAL001539

PATIENT

DRUGS (6)
  1. INSULIN GLARGINE [Concomitant]
     Active Substance: INSULIN GLARGINE
     Indication: DIABETES MELLITUS
     Dosage: UNK
  2. LASIX [Suspect]
     Active Substance: FUROSEMIDE
     Indication: PLEURAL EFFUSION
     Dosage: UNK
     Route: 048
  3. LASIX [Suspect]
     Active Substance: FUROSEMIDE
     Indication: ASCITES
  4. SPIRONOLACTONE. [Suspect]
     Active Substance: SPIRONOLACTONE
     Indication: ASCITES
  5. SPIRONOLACTONE. [Suspect]
     Active Substance: SPIRONOLACTONE
     Indication: PLEURAL EFFUSION
     Dosage: UNK
     Route: 048
  6. IPRAGLIFLOZIN [Suspect]
     Active Substance: IPRAGLIFLOZIN
     Indication: DIABETES MELLITUS
     Dosage: UNK MG, UNK
     Route: 065

REACTIONS (7)
  - Tongue dry [Unknown]
  - Shock [Unknown]
  - Vein collapse [Unknown]
  - Drug interaction [Unknown]
  - Dry skin [Unknown]
  - Blood pressure decreased [Recovering/Resolving]
  - Dehydration [Unknown]
